FAERS Safety Report 5715371-3 (Version None)
Quarter: 2008Q2

REPORT INFORMATION
  Report Type: 
  Country: None (occurrence: None)
  Receive Date: 20080423
  Receipt Date: 20080414
  Transmission Date: 20081010
  Serious: Yes (Other)
  Sender: FDA-Public Use
  Company Number: JP-PFIZER INC-2008033266

PATIENT
  Age: 50 Year
  Sex: Female

DRUGS (2)
  1. NORVASC [Suspect]
     Route: 048
  2. ENALAPRIL MALEATE [Concomitant]
     Route: 048

REACTIONS (1)
  - GASTRIC MUCOSAL LESION [None]
